FAERS Safety Report 9950413 (Version 1)
Quarter: 2014Q1

REPORT INFORMATION
  Report Type: Report from Study
  Country: US (occurrence: US)
  Receive Date: 20140304
  Receipt Date: 20140304
  Transmission Date: 20141002
  Serious: No
  Sender: FDA-Public Use
  Company Number: US-ABBVIE-13P-163-1072456-00

PATIENT
  Age: 28 Year
  Sex: Female
  Weight: 50.85 kg

DRUGS (2)
  1. HUMIRA [Suspect]
     Indication: PSORIASIS
     Dosage: PSORIASIS STARTER KIT
     Dates: start: 201210, end: 201210
  2. HUMIRA [Suspect]
     Dates: start: 201210

REACTIONS (2)
  - Inappropriate schedule of drug administration [Recovered/Resolved]
  - Medication error [Unknown]
